FAERS Safety Report 11218506 (Version 1)
Quarter: 2015Q2

REPORT INFORMATION
  Report Type: Spontaneous
  Country: US (occurrence: US)
  Receive Date: 20150625
  Receipt Date: 20150625
  Transmission Date: 20150821
  Serious: No
  Sender: FDA-Public Use
  Company Number: US-PFIZER INC-2015207712

PATIENT
  Age: 53 Year
  Sex: Female
  Weight: 140.59 kg

DRUGS (2)
  1. LYRICA [Suspect]
     Active Substance: PREGABALIN
     Indication: FIBROMYALGIA
     Dosage: 75 MG, 2X/DAY
     Route: 048
     Dates: start: 201506
  2. BACLOFEN. [Concomitant]
     Active Substance: BACLOFEN
     Indication: MUSCLE RELAXANT THERAPY
     Dosage: 20 MG 1-2 TABLETS TWICE A DAY AS NEEDED

REACTIONS (2)
  - Dizziness [Recovered/Resolved]
  - Logorrhoea [Unknown]

NARRATIVE: CASE EVENT DATE: 201506
